FAERS Safety Report 8438953-7 (Version None)
Quarter: 2012Q2

REPORT INFORMATION
  Report Type: 
  Country: None (occurrence: None)
  Receive Date: 20120615
  Receipt Date: 20120613
  Transmission Date: 20120825
  Serious: No
  Sender: FDA-Public Use
  Company Number: US-PFIZER INC-2012143026

PATIENT
  Sex: Female
  Weight: 54.422 kg

DRUGS (6)
  1. SARAFEM [Concomitant]
     Dosage: UNK
  2. ALLERTEC [Concomitant]
     Indication: HYPERSENSITIVITY
  3. OMEPRAZOLE [Concomitant]
     Dosage: UNK
  4. CHANTIX [Suspect]
     Dosage: 1 MG, 2X/DAY
     Route: 048
     Dates: end: 20110101
  5. CHANTIX [Suspect]
     Indication: SMOKING CESSATION THERAPY
     Dosage: 0.5 MG, 1X/DAY
     Route: 048
     Dates: start: 20110301
  6. MULTI-VITAMINS [Concomitant]

REACTIONS (1)
  - VOMITING [None]
